FAERS Safety Report 7581905-X (Version None)
Quarter: 2011Q2

REPORT INFORMATION
  Report Type: 
  Country: None (occurrence: None)
  Receive Date: 20110629
  Receipt Date: 20101210
  Transmission Date: 20111010
  Serious: Yes (Other)
  Sender: FDA-Public Use
  Company Number: PHFR2010GB04625

PATIENT
  Sex: Female

DRUGS (3)
  1. CLOZAPINE [Suspect]
     Indication: SCHIZOPHRENIA, PARANOID TYPE
     Route: 048
     Dates: start: 20010701
  2. AMISULPRIDE [Suspect]
     Indication: SCHIZOPHRENIA, PARANOID TYPE
     Dosage: 100 MG/DAY
     Route: 048
  3. CLOZAPINE [Suspect]
     Dosage: 400 MG/DAY
     Route: 048

REACTIONS (3)
  - MENORRHAGIA [None]
  - HAEMOGLOBIN DECREASED [None]
  - UTERINE LEIOMYOMA [None]
